FAERS Safety Report 16876863 (Version 1)
Quarter: 2019Q4

REPORT INFORMATION
  Report Type: Spontaneous
  Country: DE (occurrence: DE)
  Receive Date: 20191002
  Receipt Date: 20191002
  Transmission Date: 20200122
  Serious: Yes (Hospitalization)
  Sender: FDA-Public Use
  Company Number: DE-MYLANLABS-2019M1091306

PATIENT
  Age: 2 Year
  Sex: Male
  Weight: 14 kg

DRUGS (7)
  1. CANDESARTAN. [Suspect]
     Active Substance: CANDESARTAN
     Indication: PRODUCT USED FOR UNKNOWN INDICATION
     Dosage: 4 MILLIGRAM (4 MG, SINGLE DOSE)
     Route: 048
     Dates: start: 20190429
  2. PREGABALIN. [Suspect]
     Active Substance: PREGABALIN
     Indication: PRODUCT USED FOR UNKNOWN INDICATION
     Dosage: UNK (UNK, SINGLE DOSE)
     Route: 048
     Dates: start: 20190429
  3. PANTOPRAZOLE [Suspect]
     Active Substance: PANTOPRAZOLE
     Indication: PRODUCT USED FOR UNKNOWN INDICATION
     Dosage: 40 MILLIGRAM (40 MG, SINGLE DOSE)
     Route: 048
     Dates: start: 20190429
  4. IRON SULFATE [Suspect]
     Active Substance: FERROUS SULFATE ANHYDROUS
     Indication: PRODUCT USED FOR UNKNOWN INDICATION
     Dosage: 80 MG, SINGLE DOSE
     Route: 048
     Dates: start: 20190429
  5. MILNACIPRAN [Suspect]
     Active Substance: MILNACIPRAN
     Indication: PRODUCT USED FOR UNKNOWN INDICATION
     Dosage: 37.5 MILLIGRAM(37.5 MG, SINGLE DOSE)
     Route: 048
     Dates: start: 20190429
  6. TRAMADOL. [Suspect]
     Active Substance: TRAMADOL
     Indication: PRODUCT USED FOR UNKNOWN INDICATION
     Dosage: 50 MILLIGRAM (50 MG, SINGLE DOSE)
     Route: 048
     Dates: start: 20190429
  7. BISOPROLOL [Suspect]
     Active Substance: BISOPROLOL
     Indication: PRODUCT USED FOR UNKNOWN INDICATION
     Dosage: 5 MILLIGRAM (5 MG, SINGLE DOSE)
     Route: 048
     Dates: start: 20190429

REACTIONS (2)
  - No adverse event [Recovered/Resolved]
  - Accidental exposure to product by child [Recovered/Resolved]

NARRATIVE: CASE EVENT DATE: 20190429
